FAERS Safety Report 19068356 (Version 1)
Quarter: 2021Q1

REPORT INFORMATION
  Report Type: Spontaneous
  Country: AR (occurrence: AR)
  Receive Date: 20210329
  Receipt Date: 20210329
  Transmission Date: 20210420
  Serious: Yes (Other)
  Sender: FDA-Public Use
  Company Number: AR-PFIZER INC-2021289037

PATIENT
  Age: 74 Year
  Sex: Female

DRUGS (1)
  1. IBRANCE [Suspect]
     Active Substance: PALBOCICLIB
     Indication: BREAST CANCER METASTATIC
     Dosage: 125 MG, CYCLIC (DAILY, SCHEME 3X1)
     Dates: start: 20210216

REACTIONS (6)
  - Thermal burn [Unknown]
  - Neoplasm progression [Unknown]
  - Tumour haemorrhage [Unknown]
  - Wound [Unknown]
  - Wound haemorrhage [Unknown]
  - Tumour pain [Unknown]
